FAERS Safety Report 6359161-X (Version None)
Quarter: 2009Q3

REPORT INFORMATION
  Report Type: 
  Country: None (occurrence: None)
  Receive Date: 20090917
  Receipt Date: 20090911
  Transmission Date: 20100115
  Serious: Yes (Other)
  Sender: FDA-Public Use
  Company Number: US-JNJFOC-20090904331

PATIENT
  Sex: Female
  Weight: 47 kg

DRUGS (7)
  1. LEVAQUIN [Suspect]
     Indication: CHRONIC OBSTRUCTIVE PULMONARY DISEASE
     Route: 042
  2. BENICAR [Concomitant]
     Route: 065
  3. GLIMEPIRIDE [Concomitant]
     Route: 065
  4. ACTOS [Concomitant]
     Route: 065
  5. ASACOL [Concomitant]
     Route: 065
  6. SOLU-MEDROL [Concomitant]
     Route: 042
  7. ALBUTEROL SULFATE AND IPRATROPIUM BROMIDE [Concomitant]
     Route: 065

REACTIONS (1)
  - HYPOTENSION [None]
